FAERS Safety Report 6997372-0 (Version None)
Quarter: 2010Q3

REPORT INFORMATION
  Report Type: 
  Country: None (occurrence: None)
  Receive Date: 20100918
  Receipt Date: 20090928
  Transmission Date: 20110219
  Serious: No
  Sender: FDA-Public Use
  Company Number: US-WYE-H11273409

PATIENT
  Sex: Male
  Weight: 72.64 kg

DRUGS (4)
  1. PRISTIQ [Suspect]
     Indication: DEPRESSION
     Route: 048
     Dates: start: 20090101, end: 20090923
  2. LAMIVUDINE [Concomitant]
  3. ISENTRESS [Concomitant]
  4. LORAZEPAM [Concomitant]

REACTIONS (3)
  - HYPERHIDROSIS [None]
  - INSOMNIA [None]
  - PSYCHOMOTOR HYPERACTIVITY [None]
